FAERS Safety Report 19064640 (Version 1)
Quarter: 2021Q1

REPORT INFORMATION
  Report Type: Spontaneous
  Country: JP (occurrence: JP)
  Receive Date: 20210326
  Receipt Date: 20210326
  Transmission Date: 20210420
  Serious: Yes (Other)
  Sender: FDA-Public Use
  Company Number: JP-PFIZER INC-2021163461

PATIENT
  Age: 68 Year
  Sex: Male
  Weight: 65.2 kg

DRUGS (8)
  1. BONALON [Concomitant]
     Active Substance: ALENDRONATE SODIUM
     Indication: OSTEOPOROSIS
     Dosage: 35 MG, WEEKLY
     Route: 048
     Dates: start: 20091009
  2. RHEUMATREX [Suspect]
     Active Substance: METHOTREXATE SODIUM
     Indication: RHEUMATOID ARTHRITIS
     Dosage: 6 MG, WEEKLY,(2 CAPSULES + 1 CAPSULE/WEEK)
     Route: 048
     Dates: start: 20090710, end: 20100201
  3. FOLIAMIN [Concomitant]
     Active Substance: FOLIC ACID
     Indication: FOLATE DEFICIENCY
     Dosage: 5 MG, WEEKLY
     Route: 048
     Dates: start: 20090710, end: 20200131
  4. FORXIGA [Concomitant]
     Active Substance: DAPAGLIFLOZIN
     Indication: DIABETES MELLITUS
     Dosage: 5 MG, DAILY
     Route: 048
     Dates: start: 20160330
  5. CERNILTON [CERNITIN GBX;CERNITIN T60] [Concomitant]
     Indication: PROSTATITIS
     Dosage: 6 DF, DAILY
     Route: 048
     Dates: start: 20190405
  6. BLOPRESS [Concomitant]
     Active Substance: CANDESARTAN CILEXETIL
     Indication: HYPERTENSION
     Dosage: 4 MG, DAILY
     Route: 048
     Dates: start: 20091105
  7. RHEUMATREX [Suspect]
     Active Substance: METHOTREXATE SODIUM
     Dosage: 8 MG, WEEKLY, (3 CAPSULES +1 CAPSULE/WEEK)
     Route: 048
     Dates: start: 20100204, end: 20200131
  8. ZETIA [Concomitant]
     Active Substance: EZETIMIBE
     Indication: DYSLIPIDAEMIA
     Dosage: 10 MG, DAILY
     Route: 048
     Dates: start: 20110824

REACTIONS (16)
  - Haemoglobin decreased [Recovered/Resolved]
  - Lymphocyte count abnormal [Not Recovered/Not Resolved]
  - C-reactive protein increased [Recovered/Resolved]
  - Metastases to lung [Unknown]
  - Lung neoplasm malignant [Unknown]
  - Blood creatinine decreased [Recovered/Resolved]
  - Blood creatine phosphokinase decreased [Recovered/Resolved]
  - Aortic disorder [Unknown]
  - Haematocrit decreased [Recovered/Resolved]
  - Neutrophil count abnormal [Not Recovered/Not Resolved]
  - Post transplant lymphoproliferative disorder [Recovered/Resolved]
  - Metastases to lymph nodes [Unknown]
  - Pulmonary mass [Unknown]
  - Blood lactate dehydrogenase increased [Unknown]
  - Blood glucose increased [Recovered/Resolved]
  - Glucose urine present [Unknown]

NARRATIVE: CASE EVENT DATE: 20190830
